FAERS Safety Report 4862432-7 (Version None)
Quarter: 2005Q4

REPORT INFORMATION
  Report Type: 
  Country: None (occurrence: None)
  Receive Date: 20051221
  Receipt Date: 20051206
  Transmission Date: 20060501
  Serious: Yes (Death, Hospitalization, Other)
  Sender: FDA-Public Use
  Company Number: PHNR2005AU01698

PATIENT
  Age: 29 Year
  Sex: Male
  Weight: 77.097 kg

DRUGS (9)
  1. CLOZARIL [Suspect]
     Indication: SCHIZOPHRENIA
     Dosage: 0 - 500 MG/DAY
     Dates: start: 19980402, end: 20000301
  2. CLOZARIL [Suspect]
     Dates: start: 20000301, end: 20000301
  3. CLOZARIL [Suspect]
     Dates: start: 20000301, end: 20030101
  4. CLOZARIL [Suspect]
     Dates: start: 20030101, end: 20030101
  5. CLOZARIL [Suspect]
     Dosage: UNK, UNK
     Dates: start: 20030201, end: 20030101
  6. VENTOLIN [Concomitant]
     Indication: ASTHMA
  7. VALPROATE SODIUM [Suspect]
     Dosage: 300 MG, BID
  8. LITHIUM [Concomitant]
     Dosage: 500 MG, BID
  9. VALIUM [Suspect]

REACTIONS (23)
  - BLOOD CREATINE PHOSPHOKINASE INCREASED [None]
  - CHEST DISCOMFORT [None]
  - COORDINATION ABNORMAL [None]
  - DIFFICULTY IN WALKING [None]
  - DISORIENTATION [None]
  - DIZZINESS [None]
  - DRUG INTERACTION [None]
  - DRUG LEVEL ABOVE THERAPEUTIC [None]
  - FEBRILE INFECTION [None]
  - HEADACHE [None]
  - NASAL CONGESTION [None]
  - NAUSEA [None]
  - PHARYNGOLARYNGEAL PAIN [None]
  - PRODUCTIVE COUGH [None]
  - PSYCHOTIC DISORDER [None]
  - PYREXIA [None]
  - RASH GENERALISED [None]
  - RESPIRATORY TRACT INFECTION [None]
  - SEDATION [None]
  - SOMNOLENCE [None]
  - SUDDEN DEATH [None]
  - VIRAL INFECTION [None]
  - VOMITING [None]
